FAERS Safety Report 19397700 (Version 1)
Quarter: 2021Q2

REPORT INFORMATION
  Report Type: Spontaneous
  Country: CA (occurrence: CA)
  Receive Date: 20210609
  Receipt Date: 20210609
  Transmission Date: 20210717
  Serious: Yes (Death, Other)
  Sender: FDA-Public Use
  Company Number: CA-BRISTOL-MYERS SQUIBB COMPANY-BMS-2021-056021

PATIENT
  Age: 54 Year
  Sex: Male

DRUGS (14)
  1. SUSTIVA [Interacting]
     Active Substance: EFAVIRENZ
     Indication: PRODUCT USED FOR UNKNOWN INDICATION
     Dosage: 400 MILLIGRAM,1 EVERY 1 DAYS
     Route: 048
  2. ENFUVIRTIDE. [Concomitant]
     Active Substance: ENFUVIRTIDE
     Indication: HIV INFECTION
     Dosage: UNK
     Route: 058
  3. T?20 [Concomitant]
     Active Substance: ENFUVIRTIDE
     Indication: PRODUCT USED FOR UNKNOWN INDICATION
     Dosage: UNK
     Route: 065
  4. ATAZANAVIR SULFATE. [Suspect]
     Active Substance: ATAZANAVIR SULFATE
     Indication: HIV INFECTION
     Dosage: UNK
     Route: 005
  5. BUPROPION HYDROCHLORIDE. [Interacting]
     Active Substance: BUPROPION HYDROCHLORIDE
     Indication: BIPOLAR DISORDER
     Dosage: UNK
     Route: 065
  6. ISENTRESS [Interacting]
     Active Substance: RALTEGRAVIR POTASSIUM
     Indication: HIV INFECTION
     Dosage: 400 MILLIGRAM,2 EVERY 1 DAYS
     Route: 048
  7. SERTRALINE HYDROCHLORIDE. [Interacting]
     Active Substance: SERTRALINE HYDROCHLORIDE
     Indication: BIPOLAR DISORDER
     Dosage: 400 MILLIGRAM,2 EVERY 1 DAYS
     Route: 065
  8. CLONAZEPAM. [Interacting]
     Active Substance: CLONAZEPAM
     Indication: BIPOLAR DISORDER
     Dosage: UNK
     Route: 048
  9. LAMIVUDINE. [Suspect]
     Active Substance: LAMIVUDINE
     Indication: HIV INFECTION
     Dosage: UNK
     Route: 065
  10. KALETRA [Interacting]
     Active Substance: LOPINAVIR\RITONAVIR
     Indication: HIV INFECTION
     Dosage: UNK
     Route: 065
  11. QUETIAPINE. [Interacting]
     Active Substance: QUETIAPINE
     Indication: BIPOLAR DISORDER
     Route: 048
  12. SERTRALINE [Interacting]
     Active Substance: SERTRALINE HYDROCHLORIDE
     Indication: BIPOLAR DISORDER
     Dosage: UNK
     Route: 065
  13. VALPROIC ACID. [Interacting]
     Active Substance: VALPROIC ACID
     Indication: BIPOLAR DISORDER
     Dosage: UNK
     Route: 065
  14. ZOPICLONE [Interacting]
     Active Substance: ZOPICLONE
     Indication: BIPOLAR DISORDER
     Dosage: UNK
     Route: 048

REACTIONS (2)
  - Drug interaction [Fatal]
  - Depression [Fatal]
